FAERS Safety Report 16866429 (Version 1)
Quarter: 2019Q3

REPORT INFORMATION
  Report Type: Spontaneous
  Country: GR (occurrence: GR)
  Receive Date: 20190930
  Receipt Date: 20190930
  Transmission Date: 20191005
  Serious: Yes (Death, Other)
  Sender: FDA-Public Use
  Company Number: GR-ROCHE-233309

PATIENT
  Age: 63 Year
  Sex: Male

DRUGS (1)
  1. DORMICUM (INJ) [Suspect]
     Active Substance: MIDAZOLAM HYDROCHLORIDE
     Indication: SEDATION
     Dosage: 2ML DORMICUM SOLUTION CONTAINING 10MG MIDAZOLAM WAS ADMINISTERED.
     Route: 042

REACTIONS (4)
  - Overdose [Fatal]
  - Cardiac disorder [Unknown]
  - Coma [Not Recovered/Not Resolved]
  - Cardiac fibrillation [Fatal]
